FAERS Safety Report 8620328-9 (Version None)
Quarter: 2012Q3

REPORT INFORMATION
  Report Type: 
  Country: None (occurrence: None)
  Receive Date: 20120824
  Receipt Date: 20120820
  Transmission Date: 20120928
  Serious: Yes (Hospitalization, Other)
  Sender: FDA-Public Use
  Company Number: US-009507513-2010SP056198

PATIENT

DRUGS (3)
  1. NUVARING [Suspect]
     Indication: CONTRACEPTION
     Dates: start: 20050413, end: 20050529
  2. COUMADIN [Suspect]
     Indication: DEEP VEIN THROMBOSIS
     Dosage: UNK
  3. VITAMINS (UNSPECIFIED) [Concomitant]
     Dosage: UNK UNK, QD

REACTIONS (7)
  - DEEP VEIN THROMBOSIS [None]
  - TRICUSPID VALVE INCOMPETENCE [None]
  - PALPITATIONS [None]
  - HYPERCOAGULATION [None]
  - EXTRASYSTOLES [None]
  - LIGAMENT SPRAIN [None]
  - CONTUSION [None]
